FAERS Safety Report 8024894-6 (Version None)
Quarter: 2012Q1

REPORT INFORMATION
  Report Type: 
  Country: None (occurrence: None)
  Receive Date: 20120105
  Receipt Date: 20111228
  Transmission Date: 20120608
  Serious: Yes (Other)
  Sender: FDA-Public Use
  Company Number: PHEH2011US05369

PATIENT
  Sex: Male
  Weight: 51 kg

DRUGS (9)
  1. AFINITOR [Suspect]
     Indication: ASTROCYTOMA, LOW GRADE
     Dosage: 5 MG, UNK
     Dates: start: 20110611
  2. AFINITOR [Suspect]
     Indication: TUBEROUS SCLEROSIS
     Dosage: 5 MG, MONDAY TO SATURDAY
     Route: 048
     Dates: start: 20110917
  3. M.V.I. [Concomitant]
  4. CLONIDINE [Concomitant]
  5. LAMICTAL [Concomitant]
  6. AFINITOR [Suspect]
     Dosage: 10 MG, DAILY
     Route: 048
  7. TOPAMAX [Concomitant]
  8. AFINITOR [Suspect]
     Dosage: 5 MG, DAILY
     Route: 048
     Dates: start: 20111025
  9. DEPAKOTE [Concomitant]

REACTIONS (8)
  - DRUG LEVEL BELOW THERAPEUTIC [None]
  - POOR QUALITY SLEEP [None]
  - VIRAL INFECTION [None]
  - CONTUSION [None]
  - SCRATCH [None]
  - DIARRHOEA [None]
  - CONVULSION [None]
  - SOMNOLENCE [None]
